FAERS Safety Report 6247611-9 (Version None)
Quarter: 2009Q2

REPORT INFORMATION
  Report Type: 
  Country: None (occurrence: None)
  Receive Date: 20090626
  Receipt Date: 20090619
  Transmission Date: 20091009
  Serious: Yes (Hospitalization)
  Sender: FDA-Public Use
  Company Number: JP-AVENTIS-200913661EU

PATIENT
  Age: 82 Year
  Sex: Female

DRUGS (5)
  1. ALTAT [Suspect]
     Dosage: DOSE: UNK
     Route: 048
  2. FUROSEMIDE INTENSOL [Suspect]
     Dosage: DOSE: UNK
  3. AMLODIPINE BESYLATE [Suspect]
     Dosage: DOSE: UNK
     Route: 048
  4. CANDESARTAN CILEXETIL [Suspect]
     Dosage: DOSE: UNK
     Route: 048
  5. PRAVASTATIN SODIUM [Suspect]

REACTIONS (1)
  - PNEUMONIA [None]
